FAERS Safety Report 4699028-6 (Version None)
Quarter: 2005Q2

REPORT INFORMATION
  Report Type: 
  Country: None (occurrence: None)
  Receive Date: 20050624
  Receipt Date: 20050530
  Transmission Date: 20051028
  Serious: Yes (Hospitalization)
  Sender: FDA-Public Use
  Company Number: PHRM2005FR01675

PATIENT
  Age: 3 Year
  Sex: Male

DRUGS (4)
  1. ORACILLINE [Concomitant]
     Route: 048
     Dates: start: 20050301
  2. RIBOMUNYL [Concomitant]
     Route: 048
     Dates: start: 20050301
  3. ISOPRINOSINE [Concomitant]
     Dosage: UNK, UNK
     Route: 048
     Dates: start: 20050301
  4. ZADITEN [Suspect]
     Indication: UPPER RESPIRATORY TRACT INFECTION
     Dosage: 1 DF, BID
     Route: 048
     Dates: start: 20050402, end: 20050527

REACTIONS (2)
  - CONVULSION [None]
  - LOSS OF CONSCIOUSNESS [None]
